FAERS Safety Report 24678047 (Version 2)
Quarter: 2024Q4

REPORT INFORMATION
  Report Type: Spontaneous
  Country: TW (occurrence: TW)
  Receive Date: 20241129
  Receipt Date: 20241210
  Transmission Date: 20250115
  Serious: Yes (Hospitalization)
  Sender: ROCHE
  Company Number: TW-CHUGAI-2024041097

PATIENT
  Age: 45 Year
  Sex: Female
  Weight: 64.5 kg

DRUGS (5)
  1. ACTEMRA [Suspect]
     Active Substance: TOCILIZUMAB
     Indication: Rheumatoid arthritis
     Dosage: 162 MILLIGRAM, Q10D
     Route: 050
     Dates: start: 20130216, end: 20241020
  2. CELEBREX [Concomitant]
     Active Substance: CELECOXIB
     Indication: Rheumatoid arthritis
     Dosage: 200 MILLIGRAM, BID
     Route: 050
     Dates: start: 20200610
  3. PREDNISOLONE [Concomitant]
     Active Substance: PREDNISOLONE
     Indication: Rheumatoid arthritis
     Dosage: 2.5 MILLIGRAM, QD
     Route: 050
     Dates: start: 20190814
  4. SULFASALAZINE [Concomitant]
     Active Substance: SULFASALAZINE
     Indication: Rheumatoid arthritis
     Dosage: 1 GRAM, BID
     Route: 050
     Dates: start: 20200909
  5. METHOTREXATE [Concomitant]
     Active Substance: METHOTREXATE
     Indication: Rheumatoid arthritis
     Dosage: 7.5 MILLIGRAM, ONCE/WEEK
     Route: 050
     Dates: start: 20210324

REACTIONS (1)
  - Diverticulitis intestinal haemorrhagic [Recovered/Resolved]

NARRATIVE: CASE EVENT DATE: 20241006
